FAERS Safety Report 15639483 (Version 1)
Quarter: 2018Q4

REPORT INFORMATION
  Report Type: Spontaneous
  Country: US (occurrence: US)
  Receive Date: 20181120
  Receipt Date: 20181120
  Transmission Date: 20190205
  Serious: Yes (Other)
  Sender: FDA-Public Use
  Company Number: US-PFIZER INC-2018475387

PATIENT
  Sex: Female

DRUGS (2)
  1. SOLU-MEDROL [Suspect]
     Active Substance: METHYLPREDNISOLONE SODIUM SUCCINATE
     Dosage: UNK
  2. LEMTRADA [Suspect]
     Active Substance: ALEMTUZUMAB

REACTIONS (6)
  - Diabetes mellitus [Unknown]
  - Emotional disorder [Unknown]
  - Urinary tract infection [Unknown]
  - Visual impairment [Unknown]
  - Weight decreased [Unknown]
  - Malaise [Unknown]
